FAERS Safety Report 6004245-9 (Version None)
Quarter: 2008Q4

REPORT INFORMATION
  Report Type: 
  Country: None (occurrence: None)
  Receive Date: 20081216
  Receipt Date: 20081209
  Transmission Date: 20090506
  Serious: Yes (Hospitalization)
  Sender: FDA-Public Use
  Company Number: JP-PFIZER INC-2008152590

PATIENT

DRUGS (1)
  1. SALAZOPYRIN [Suspect]
     Route: 048

REACTIONS (1)
  - OEDEMA [None]
